FAERS Safety Report 6232416-5 (Version None)
Quarter: 2009Q2

REPORT INFORMATION
  Report Type: 
  Country: None (occurrence: None)
  Receive Date: 20090615
  Receipt Date: 20090615
  Transmission Date: 20091009
  Serious: Yes (Other)
  Sender: FDA-Public Use
  Company Number: None

PATIENT
  Age: 69 Year
  Sex: Female
  Weight: 60.3284 kg

DRUGS (3)
  1. DICLOFENAC SODIUM [Suspect]
     Indication: PLANTAR FASCIITIS
     Dosage: 75 MG 2X DAY ORAL
     Route: 048
     Dates: start: 20090514
  2. DICLOFENAC SODIUM [Suspect]
     Indication: PLANTAR FASCIITIS
     Dosage: 75 MG 2X DAY ORAL
     Route: 048
     Dates: start: 20090515
  3. DICLOFENAC SODIUM [Suspect]
     Indication: PLANTAR FASCIITIS
     Dosage: 75 MG 2X DAY ORAL
     Route: 048
     Dates: start: 20090516

REACTIONS (2)
  - BLOOD URINE PRESENT [None]
  - DIARRHOEA HAEMORRHAGIC [None]
